FAERS Safety Report 7283269-8 (Version None)
Quarter: 2011Q1

REPORT INFORMATION
  Report Type: 
  Country: None (occurrence: None)
  Receive Date: 20110209
  Receipt Date: 20110204
  Transmission Date: 20110831
  Serious: Yes (Hospitalization)
  Sender: FDA-Public Use
  Company Number: IT-SANOFI-AVENTIS-2011SA007297

PATIENT
  Age: 79 Year
  Sex: Male

DRUGS (13)
  1. FLUTICASONE PROPIONATE/SALMETEROL [Concomitant]
     Route: 065
  2. ENALAPRIL MALEATE [Concomitant]
     Route: 065
  3. EUTIROX [Concomitant]
     Route: 065
  4. MULTAQ [Suspect]
     Dosage: DOSE:2 UNIT(S)
     Route: 048
     Dates: start: 20101118, end: 20101125
  5. SPIRONOLACTONE [Concomitant]
     Route: 065
  6. SPIRIVA [Concomitant]
     Route: 065
  7. CORDARONE [Concomitant]
     Route: 048
     Dates: start: 20081117, end: 20101115
  8. CLONIDINE [Concomitant]
     Route: 065
  9. OXYGEN [Concomitant]
     Route: 065
  10. COUMADIN [Concomitant]
     Route: 065
  11. ALLOPURINOL [Concomitant]
     Route: 065
  12. POTASSIUM CHLORIDE [Concomitant]
     Route: 065
  13. LASIX [Concomitant]
     Route: 065

REACTIONS (2)
  - ANAEMIA [None]
  - RENAL FAILURE ACUTE [None]
